FAERS Safety Report 21931190 (Version 1)
Quarter: 2023Q1

REPORT INFORMATION
  Report Type: Report from Study
  Country: MX (occurrence: MX)
  Receive Date: 20230131
  Receipt Date: 20230131
  Transmission Date: 20230417
  Serious: Yes (Other)
  Sender: FDA-Public Use
  Company Number: MX-ABBOTT-2023A-1358965

PATIENT
  Age: 70 Year
  Sex: Female
  Weight: 60 kg

DRUGS (4)
  1. TARKA [Suspect]
     Active Substance: TRANDOLAPRIL\VERAPAMIL HYDROCHLORIDE
     Indication: Hypertension
     Route: 048
     Dates: start: 202101
  2. CLONAZEPAM [Concomitant]
     Active Substance: CLONAZEPAM
     Indication: Insomnia
     Dosage: DAILY DOSE: HALF A TABLET AT NIGHT
     Route: 048
  3. MELATONIN [Concomitant]
     Active Substance: MELATONIN
     Indication: Sleep disorder
     Dosage: ONE DAILY AT NIGHT
     Route: 048
  4. HYDROCHLOROTHIAZIDE [Concomitant]
     Active Substance: HYDROCHLOROTHIAZIDE
     Indication: Urinary retention
     Dosage: DAILY DOSE: ONE DAILY ORALLY
     Route: 048

REACTIONS (11)
  - Hypertension [Recovering/Resolving]
  - Hypertension [Recovered/Resolved]
  - Dyspnoea [Unknown]
  - Vision blurred [Unknown]
  - Tachycardia [Unknown]
  - Arthralgia [Unknown]
  - Chest pain [Unknown]
  - Headache [Unknown]
  - Tachycardia [Unknown]
  - Fatigue [Unknown]
  - Hypertension [Unknown]

NARRATIVE: CASE EVENT DATE: 20220116
